FAERS Safety Report 6304525-3 (Version None)
Quarter: 2009Q3

REPORT INFORMATION
  Report Type: 
  Country: None (occurrence: None)
  Receive Date: 20090806
  Receipt Date: 20090804
  Transmission Date: 20100115
  Serious: Yes (Other)
  Sender: FDA-Public Use
  Company Number: A0789641A

PATIENT
  Age: 64 Year
  Sex: Female

DRUGS (1)
  1. UREA PEROXIDE [Suspect]
     Dosage: AURAL
     Route: 001

REACTIONS (2)
  - DEAFNESS TRANSITORY [None]
  - EAR PAIN [None]
